FAERS Safety Report 6636845-7 (Version None)
Quarter: 2010Q1

REPORT INFORMATION
  Report Type: 
  Country: None (occurrence: None)
  Receive Date: 20100316
  Receipt Date: 20100308
  Transmission Date: 20100710
  Serious: Yes (Hospitalization)
  Sender: FDA-Public Use
  Company Number: US-TEVA-227133USA

PATIENT
  Age: 61 Year
  Sex: Male

DRUGS (6)
  1. CIPROFLOXACIN HYDROCHLORIDE TABLETS, 250 MG, 500 MG, 750 MG [Suspect]
  2. VENLAFAXINE [Suspect]
     Indication: MAJOR DEPRESSION
  3. METHADONE HYDROCHLORIDE [Suspect]
     Indication: BACK PAIN
  4. METOCLOPRAMIDE [Concomitant]
  5. HYDROMORPHONE HCL [Concomitant]
     Indication: BACK PAIN
  6. OXYCODONE HCL [Concomitant]
     Indication: BACK PAIN

REACTIONS (2)
  - DRUG INTERACTION [None]
  - SEROTONIN SYNDROME [None]
